FAERS Safety Report 8799923 (Version 1)
Quarter: 2012Q4

REPORT INFORMATION
  Report Type: Spontaneous
  Country: JP (occurrence: None)
  Receive Date: 20120917
  Receipt Date: 20120917
  Transmission Date: 20130627
  Serious: Yes (Other)
  Sender: FDA-Public Use
  Company Number: DSA_59550_2012

PATIENT

DRUGS (4)
  1. FLUOROURACIL (FLUOROURACIL) [Suspect]
     Indication: GASTRIC CANCER
     Dosage: 400 mg/m2 (every other week) intravenous bolus), (240 mg/m2 (every other week) intravenous (not otherwise specified))
     Route: 040
  2. OXALIPLATIN (OXALIPLATIN) [Suspect]
     Indication: GASTRIC CANCER
     Dosage: 85 mg/m2 (every other week) intravenous (not otherwise specified)
     Route: 042
  3. LEUCOVORIN [Suspect]
     Indication: GASTRIC CANCER
     Dosage: 200 mg/m2 (every other week) intravenous (not otherwise specified)
     Route: 042
  4. ANTINEOPLASTIC AGENTS (UNKNOWN) [Concomitant]

REACTIONS (2)
  - Neutropenia [None]
  - Haematotoxicity [None]
